FAERS Safety Report 5356849-4 (Version None)
Quarter: 2007Q2

REPORT INFORMATION
  Report Type: 
  Country: None (occurrence: None)
  Receive Date: 20070614
  Receipt Date: 20061115
  Transmission Date: 20071010
  Serious: No
  Sender: FDA-Public Use
  Company Number: US-ASTRAZENECA-2006UW24370

PATIENT
  Age: 78 Year
  Sex: Female
  Weight: 50.8 kg

DRUGS (3)
  1. ATACAND [Suspect]
     Indication: HYPERTENSION
     Route: 048
     Dates: start: 20061109, end: 20061112
  2. ATACAND [Suspect]
     Route: 048
     Dates: start: 20061113
  3. THYROID MEDICINE [Concomitant]

REACTIONS (3)
  - FEELING ABNORMAL [None]
  - HEADACHE [None]
  - LIMB DISCOMFORT [None]
